FAERS Safety Report 5241533-8 (Version None)
Quarter: 2007Q1

REPORT INFORMATION
  Report Type: 
  Country: None (occurrence: None)
  Receive Date: 20070220
  Receipt Date: 20070214
  Transmission Date: 20070707
  Serious: Yes (Hospitalization)
  Sender: FDA-Public Use
  Company Number: FR-GLAXOSMITHKLINE-B0458712A

PATIENT
  Age: 93 Year
  Sex: Male
  Weight: 82 kg

DRUGS (6)
  1. AUGMENTIN '125' [Suspect]
     Indication: LUNG DISORDER
     Dosage: 1G THREE TIMES PER DAY
     Route: 042
     Dates: start: 20061103, end: 20061118
  2. RULID [Suspect]
     Indication: LUNG DISORDER
     Dosage: 150MG TWICE PER DAY
     Route: 048
     Dates: start: 20061108, end: 20061113
  3. BRICANYL [Concomitant]
     Indication: LUNG DISORDER
     Route: 055
     Dates: start: 20061104, end: 20061113
  4. ATROVENT [Concomitant]
     Indication: LUNG DISORDER
     Route: 048
     Dates: start: 20061104
  5. AMIODARONE HCL [Concomitant]
     Indication: LUNG DISORDER
     Route: 042
  6. EUPANTOL [Concomitant]
     Indication: OESOPHAGITIS
     Dosage: 40MG PER DAY
     Dates: start: 20061104, end: 20061107

REACTIONS (3)
  - BLOOD CREATINE PHOSPHOKINASE INCREASED [None]
  - MYOGLOBIN BLOOD INCREASED [None]
  - RHABDOMYOLYSIS [None]
